FAERS Safety Report 25714433 (Version 1)
Quarter: 2025Q3

REPORT INFORMATION
  Report Type: Spontaneous
  Country: GB (occurrence: GB)
  Receive Date: 20250822
  Receipt Date: 20250822
  Transmission Date: 20251021
  Serious: Yes (Hospitalization, Other)
  Sender: ACCORD
  Company Number: None

PATIENT
  Age: 71 Year
  Sex: Male

DRUGS (12)
  1. LISINOPRIL [Suspect]
     Active Substance: LISINOPRIL
     Indication: Product used for unknown indication
  2. BETAHISTINE [Concomitant]
     Active Substance: BETAHISTINE
  3. AMLODIPINE [Concomitant]
     Active Substance: AMLODIPINE BESYLATE
  4. SERTRALINE [Concomitant]
     Active Substance: SERTRALINE HYDROCHLORIDE
  5. MIRTAZAPINE [Concomitant]
     Active Substance: MIRTAZAPINE
  6. MOMETASONE [Concomitant]
     Active Substance: MOMETASONE
  7. CLOPIDOGREL [Concomitant]
     Active Substance: CLOPIDOGREL BISULFATE
  8. AMOROLFINE HYDROCHLORIDE [Concomitant]
     Active Substance: AMOROLFINE HYDROCHLORIDE
  9. METFORMIN [Concomitant]
     Active Substance: METFORMIN HYDROCHLORIDE
  10. LINAGLIPTIN [Concomitant]
     Active Substance: LINAGLIPTIN
  11. LANSOPRAZOLE [Concomitant]
     Active Substance: LANSOPRAZOLE
  12. ATORVASTATIN [Concomitant]
     Active Substance: ATORVASTATIN

REACTIONS (2)
  - Lip swelling [Recovered/Resolved]
  - Mouth swelling [Recovered/Resolved]
